FAERS Safety Report 16255244 (Version 1)
Quarter: 2019Q2

REPORT INFORMATION
  Report Type: Spontaneous
  Country: US (occurrence: US)
  Receive Date: 20190429
  Receipt Date: 20190429
  Transmission Date: 20190711
  Serious: Yes (Hospitalization)
  Sender: FDA-Public Use
  Company Number: None

PATIENT
  Age: 62 Year
  Sex: Male

DRUGS (14)
  1. TOBRAMYCIN SOL 0.3% OP [Concomitant]
  2. KALYDECO [Concomitant]
     Active Substance: IVACAFTOR
  3. SYMBICORT AER 160-4.5 [Concomitant]
  4. VANCOMY/NACL INJ 1/250ML [Concomitant]
  5. SYMDEKO [Suspect]
     Active Substance: IVACAFTOR\TEZACAFTOR
     Indication: RESPIRATORY TRACT MALFORMATION
     Dates: start: 20180411
  6. HYPERSAL NEB 7% [Concomitant]
  7. MEROPENEM INJ 1GM [Concomitant]
  8. COMBIVENT AER RESPIMAT [Concomitant]
  9. GABAPENTIN CAP 300MG [Concomitant]
     Active Substance: GABAPENTIN
  10. ALBUTEROL TAB 2MG [Concomitant]
  11. PULMICORT INJ 180MCG [Concomitant]
  12. CREON CAP 36000UNT [Concomitant]
  13. PULMOZYME SOL 1MG/ML [Concomitant]
  14. FLOVENT HFA AER 110MCG [Concomitant]

REACTIONS (1)
  - Hospitalisation [None]

NARRATIVE: CASE EVENT DATE: 20190426
